FAERS Safety Report 8053041-X (Version None)
Quarter: 2012Q1

REPORT INFORMATION
  Report Type: 
  Country: None (occurrence: None)
  Receive Date: 20120118
  Receipt Date: 20120111
  Transmission Date: 20120608
  Serious: Yes (Other)
  Sender: FDA-Public Use
  Company Number: IE-NOVOPROD-338353

PATIENT
  Age: 66 Year
  Sex: Male
  Weight: 109 kg

DRUGS (4)
  1. VICTOZA [Suspect]
     Indication: TYPE 2 DIABETES MELLITUS
     Dosage: 1.8 MG, QD
     Route: 058
     Dates: start: 20110810, end: 20111025
  2. VICTOZA [Suspect]
     Dosage: UNK
     Route: 065
  3. VICTOZA [Suspect]
     Dosage: UNK
     Route: 065
  4. WARFARIN SODIUM [Concomitant]

REACTIONS (1)
  - INTERNATIONAL NORMALISED RATIO INCREASED [None]
